FAERS Safety Report 4276465-5 (Version None)
Quarter: 2004Q1

REPORT INFORMATION
  Report Type: 
  Country: None (occurrence: None)
  Receive Date: 20040120
  Receipt Date: 20040106
  Transmission Date: 20041129
  Serious: No
  Sender: FDA-Public Use
  Company Number: 04P-163-0246530-00

PATIENT
  Age: 21 Year
  Sex: Male

DRUGS (1)
  1. BIAXIN XL [Suspect]
     Indication: PNEUMONIA
     Dosage: 500 MG, 2 IN 1 D, PER ORAL
     Route: 048
     Dates: start: 20031217, end: 20031225

REACTIONS (9)
  - AGITATION [None]
  - CHROMATURIA [None]
  - DIARRHOEA [None]
  - EYE DISORDER [None]
  - HALLUCINATION [None]
  - JAUNDICE [None]
  - PARANOIA [None]
  - PSYCHOTIC DISORDER [None]
  - RASH GENERALISED [None]
